FAERS Safety Report 17715835 (Version 2)
Quarter: 2020Q2

REPORT INFORMATION
  Report Type: Spontaneous
  Country: ES (occurrence: ES)
  Receive Date: 20200427
  Receipt Date: 20200505
  Transmission Date: 20200714
  Serious: Yes (Hospitalization)
  Sender: FDA-Public Use
  Company Number: ES-SUN PHARMACEUTICAL INDUSTRIES LTD-2020RR-245249

PATIENT
  Age: 52 Year
  Sex: Male

DRUGS (5)
  1. AZITHROMYCIN ANHYDROUS. [Suspect]
     Active Substance: AZITHROMYCIN ANHYDROUS
     Indication: PNEUMONIA
     Dosage: 500 MG DIA
     Route: 048
     Dates: start: 20200321, end: 20200326
  2. DOLQUINE 200 MG COMPRIMIDOS, 30 COMPRIMIDOS [Suspect]
     Active Substance: HYDROXYCHLOROQUINE SULFATE
     Indication: PNEUMONIA
     Dosage: 400 MG DIA
     Route: 048
     Dates: start: 20200321, end: 20200327
  3. CEFTRIAXONA (501A) [Suspect]
     Active Substance: CEFTRIAXONE
     Indication: PRODUCT USED FOR UNKNOWN INDICATION
     Dosage: 2 GR DIA
     Route: 042
     Dates: start: 20200321, end: 20200327
  4. PARACETAMOL [Suspect]
     Active Substance: ACETAMINOPHEN
     Indication: PRODUCT USED FOR UNKNOWN INDICATION
     Dosage: 1GR CADA 8 HORAS
     Route: 048
     Dates: start: 20200321, end: 20200403
  5. SIMVASTATINA  ALTER 10 MG COMPRIMIDOS RECUBIERTOS CON PELICULA EFG ... [Suspect]
     Active Substance: SIMVASTATIN
     Indication: PRODUCT USED FOR UNKNOWN INDICATION
     Dosage: 0-0-1 ()
     Route: 048
     Dates: start: 20150101

REACTIONS (1)
  - Hepatitis [Recovering/Resolving]

NARRATIVE: CASE EVENT DATE: 20200403
